FAERS Safety Report 10216577 (Version 1)
Quarter: 2014Q2

REPORT INFORMATION
  Report Type: Spontaneous
  Country: IT (occurrence: IT)
  Receive Date: 20140604
  Receipt Date: 20140604
  Transmission Date: 20141212
  Serious: Yes (Hospitalization)
  Sender: FDA-Public Use
  Company Number: IT-TEVA-484486ISR

PATIENT
  Age: 35 Year
  Sex: Female
  Weight: 65 kg

DRUGS (2)
  1. CARBAMAZEPINA TEVA 200 MG [Suspect]
     Indication: EPILEPSY
     Dosage: 400 MILLIGRAM DAILY;
     Dates: start: 20110101, end: 20140511
  2. CO EFFERALGAN 500 MG + 30 MG [Concomitant]
     Indication: HEADACHE
     Dosage: 1 TABLET DAILY; EFFERVESCENT TABLETS
     Route: 048
     Dates: start: 20140512, end: 20140512

REACTIONS (5)
  - Ataxia [Recovered/Resolved]
  - Dysarthria [Recovered/Resolved]
  - Vertigo [Recovered/Resolved]
  - Vomiting [Recovered/Resolved]
  - Toxicity to various agents [Recovered/Resolved]
